FAERS Safety Report 6187588-8 (Version None)
Quarter: 2009Q2

REPORT INFORMATION
  Report Type: 
  Country: None (occurrence: None)
  Receive Date: 20090508
  Receipt Date: 20090428
  Transmission Date: 20091009
  Serious: Yes (Hospitalization)
  Sender: FDA-Public Use
  Company Number: TCI2009A01527

PATIENT
  Age: 67 Year
  Sex: Female

DRUGS (1)
  1. LANSOPRAZOLE [Suspect]
     Dosage: PER ORAL
     Route: 048

REACTIONS (3)
  - COLITIS COLLAGENOUS [None]
  - LARGE INTESTINAL ULCER [None]
  - SCAR [None]
